FAERS Safety Report 23946803 (Version 1)
Quarter: 2024Q2

REPORT INFORMATION
  Report Type: Spontaneous
  Country: US (occurrence: None)
  Receive Date: 20240606
  Receipt Date: 20240606
  Transmission Date: 20240716
  Serious: Yes (Hospitalization)
  Sender: FDA-Public Use
  Company Number: None

PATIENT
  Age: 37 Year
  Sex: Female

DRUGS (13)
  1. MYCOPHENOLIC ACID [Suspect]
     Active Substance: MYCOPHENOLIC ACID
     Indication: Renal transplant
     Dosage: FREQUENCY : TWICE A DAY;?
     Route: 048
     Dates: start: 20210313
  2. TACROLIMUS [Suspect]
     Active Substance: TACROLIMUS
     Indication: Renal transplant
     Dosage: FREQUENCY : TWICE A DAY;?
     Route: 048
     Dates: start: 20210313
  3. ATORVASTTIN [Concomitant]
  4. EAST TOUGH 32GX6MM PEN NEEDLE [Concomitant]
  5. ESCITALOPRAM [Concomitant]
  6. NOVOLOG FLEXPEN [Concomitant]
  7. NYSTATIN [Concomitant]
  8. PANTOPRAZOLE [Concomitant]
  9. PHOSPHA [Concomitant]
  10. PREDNISONE [Concomitant]
  11. SEMGLEE [Concomitant]
  12. VALGANCICLOVIR [Concomitant]
     Active Substance: VALGANCICLOVIR
  13. WES-PHOS [Concomitant]

REACTIONS (1)
  - White blood cell disorder [None]

NARRATIVE: CASE EVENT DATE: 20240501
